FAERS Safety Report 22969429 (Version 3)
Quarter: 2024Q1

REPORT INFORMATION
  Report Type: Spontaneous
  Country: CA (occurrence: CA)
  Receive Date: 20230922
  Receipt Date: 20240112
  Transmission Date: 20240410
  Serious: Yes (Other)
  Sender: FDA-Public Use
  Company Number: CA-CELLTRION INC.-2022CA008666

PATIENT

DRUGS (15)
  1. INFLECTRA [Suspect]
     Active Substance: INFLIXIMAB-DYYB
     Indication: Crohn^s disease
     Dosage: 5 MG/KG WEEK 0,2,6 THEN Q 8 WEEKS
     Route: 042
     Dates: start: 20220314
  2. INFLECTRA [Suspect]
     Active Substance: INFLIXIMAB-DYYB
     Dosage: 300 MG (5 MG/KG), WEEK 0,2,6 THEN Q 8 WEEKS
     Route: 042
     Dates: start: 20220425
  3. INFLECTRA [Suspect]
     Active Substance: INFLIXIMAB-DYYB
     Dosage: 5 MG/KG WEEK 0,2,6 THEN Q 8 WEEKS
     Route: 042
     Dates: start: 20220815
  4. INFLECTRA [Suspect]
     Active Substance: INFLIXIMAB-DYYB
     Dosage: 5 MG/KG WEEK 0,2,6 THEN Q 8 WEEKS
     Route: 042
     Dates: start: 20221011
  5. INFLECTRA [Suspect]
     Active Substance: INFLIXIMAB-DYYB
     Dosage: 5 MG/KG WEEK 0,2,6 THEN Q 8 WEEKS
     Route: 042
     Dates: start: 20221205
  6. INFLECTRA [Suspect]
     Active Substance: INFLIXIMAB-DYYB
     Dosage: 5 MG/KG WEEK 0,2,6 THEN Q 8 WEEKS
     Route: 042
     Dates: start: 20230131
  7. INFLECTRA [Suspect]
     Active Substance: INFLIXIMAB-DYYB
     Dosage: 5 MG/KG WEEK 0,2,6 THEN Q 8 WEEKS
     Route: 042
     Dates: start: 20230523, end: 20230523
  8. INFLECTRA [Suspect]
     Active Substance: INFLIXIMAB-DYYB
     Dosage: 315 MG (5MG/KG), EVERY 8 WEEKS
     Route: 042
     Dates: start: 20230721, end: 20230721
  9. INFLECTRA [Suspect]
     Active Substance: INFLIXIMAB-DYYB
     Dosage: 300 MG (5 MG/KG), EVERY 8 WEEKS
     Route: 042
     Dates: start: 20230914
  10. INFLECTRA [Suspect]
     Active Substance: INFLIXIMAB-DYYB
     Dosage: 315 MG (5 MG/KG), EVERY 8 WEEKS
     Route: 042
     Dates: start: 20231109
  11. INFLECTRA [Suspect]
     Active Substance: INFLIXIMAB-DYYB
     Dosage: 320MG (5MG/KG), EVERY 8 WEEKS
     Route: 042
     Dates: start: 20240104, end: 20240104
  12. INFLECTRA [Suspect]
     Active Substance: INFLIXIMAB-DYYB
     Dosage: 320MG (5MG/KG), EVERY 8 WEEKS
     Route: 042
     Dates: start: 20240104
  13. CALCIUM [Concomitant]
     Active Substance: CALCIUM
     Dosage: 1 DF
  14. PREDNISONE [Concomitant]
     Active Substance: PREDNISONE
     Dosage: UNK
  15. CHOLECALCIFEROL [Concomitant]
     Active Substance: CHOLECALCIFEROL
     Dosage: 1 DF

REACTIONS (5)
  - Vulvovaginal injury [Not Recovered/Not Resolved]
  - Anal fissure [Not Recovered/Not Resolved]
  - Fistula [Recovered/Resolved]
  - Body temperature decreased [Unknown]
  - Hypertension [Recovered/Resolved]

NARRATIVE: CASE EVENT DATE: 20230801
